FAERS Safety Report 22850588 (Version 2)
Quarter: 2023Q4

REPORT INFORMATION
  Report Type: Report from Study
  Country: US (occurrence: None)
  Receive Date: 20230822
  Receipt Date: 20231115
  Transmission Date: 20240110
  Serious: Yes (Hospitalization)
  Sender: FDA-Public Use
  Company Number: US-ROCHE-3408626

PATIENT
  Age: 64 Year
  Sex: Female
  Weight: 70.6 kg

DRUGS (4)
  1. ATEZOLIZUMAB [Suspect]
     Active Substance: ATEZOLIZUMAB
     Indication: Adenocarcinoma of colon
     Dosage: ON 31/OCT/2022, LAST DOSE OF ATEZOLIZUMAB WAS ADMINISTERED.
     Route: 041
     Dates: start: 20221031
  2. FLUOROURACIL [Suspect]
     Active Substance: FLUOROURACIL
     Indication: Adenocarcinoma of colon
     Dosage: ON 02/NOV/2022, LAST DOSE OF 5-FLUROURACIL WAS ADMINISTERED.?400MG/M2 IV (BOLUS) ON DAY 1 FOLLOWED B
     Route: 042
     Dates: start: 20221031
  3. LEUCOVORIN CALCIUM [Suspect]
     Active Substance: LEUCOVORIN CALCIUM
     Indication: Adenocarcinoma of colon
     Dosage: ON 31/OCT/2022, LAST DOSE OF LEUCOVORIN CALCIUM WAS ADMINISTERED. ?400MG/M2 IV OVER 2 HOURS ON DAY 1
     Route: 042
     Dates: start: 20221031
  4. OXALIPLATIN [Suspect]
     Active Substance: OXALIPLATIN
     Indication: Adenocarcinoma of colon
     Dosage: ON 31/OCT/2022, LAST DOSE OF OXALIPLATIN WAS ADMINISTERED.?85MG/M2 IV OVER 2 HOURS ON DAY 1
     Route: 042
     Dates: start: 20221031

REACTIONS (1)
  - Flank pain [Recovered/Resolved]

NARRATIVE: CASE EVENT DATE: 20221106
